FAERS Safety Report 21399478 (Version 1)
Quarter: 2022Q4

REPORT INFORMATION
  Report Type: Report from Study
  Country: US (occurrence: US)
  Receive Date: 20221001
  Receipt Date: 20221001
  Transmission Date: 20230112
  Serious: Yes (Death, Hospitalization, Other)
  Sender: FDA-Public Use
  Company Number: US-CHIESI-2022CHF05060

PATIENT
  Age: 60 Year
  Sex: Female
  Weight: 71.3 kg

DRUGS (3)
  1. KENGREAL [Suspect]
     Active Substance: CANGRELOR
     Indication: Percutaneous coronary intervention
     Dosage: 30 MICROGRAM/KILOGRAM
     Route: 040
     Dates: start: 20220721, end: 20220722
  2. KENGREAL [Suspect]
     Active Substance: CANGRELOR
     Dosage: UNK
     Route: 042
     Dates: start: 20220721, end: 20220722
  3. FENTANYL [Concomitant]
     Active Substance: FENTANYL
     Indication: Product used for unknown indication
     Dosage: UNK
     Dates: start: 20220721

REACTIONS (7)
  - Respiratory failure [Fatal]
  - Pneumothorax [Fatal]
  - Multiple organ dysfunction syndrome [Fatal]
  - Retroperitoneal haemorrhage [Unknown]
  - Haemorrhage [Unknown]
  - Off label use [Recovered/Resolved]
  - Off label use [Recovered/Resolved]

NARRATIVE: CASE EVENT DATE: 20220701
